FAERS Safety Report 22200668 (Version 2)
Quarter: 2023Q2

REPORT INFORMATION
  Report Type: Report from Study
  Country: IT (occurrence: IT)
  Receive Date: 20230412
  Receipt Date: 20230421
  Transmission Date: 20230722
  Serious: Yes (Other)
  Sender: FDA-Public Use
  Company Number: IT-GILEAD-2023-0623618

PATIENT
  Age: 63 Year
  Sex: Male

DRUGS (1)
  1. EMTRICITABINE\RILPIVIRINE HYDROCHLORIDE\TENOFOVIR ALAFENAMIDE FUMARATE [Suspect]
     Active Substance: EMTRICITABINE\RILPIVIRINE HYDROCHLORIDE\TENOFOVIR ALAFENAMIDE FUMARATE
     Indication: HIV infection
     Dosage: 1 DOSAGE FORM, QD
     Route: 048

REACTIONS (27)
  - Suicidal ideation [Unknown]
  - Self-injurious ideation [Unknown]
  - Mood altered [Unknown]
  - Performance status decreased [Unknown]
  - Emotional disorder [Unknown]
  - Pain [Unknown]
  - General physical condition abnormal [Unknown]
  - Disturbance in social behaviour [Unknown]
  - Anger [Unknown]
  - Frustration tolerance decreased [Unknown]
  - Decreased interest [Unknown]
  - Asthenia [Unknown]
  - Hyperphagia [Unknown]
  - Feeling abnormal [Unknown]
  - Nocturia [Unknown]
  - Dyspnoea [Unknown]
  - Feeling hot [Unknown]
  - Hypersomnia [Unknown]
  - Mood altered [Unknown]
  - Depressed mood [Unknown]
  - Sleep disorder [Unknown]
  - Decreased appetite [Unknown]
  - Depression [Unknown]
  - Fatigue [Unknown]
  - Intentional dose omission [Unknown]
  - Product dose omission issue [Unknown]
  - Inappropriate schedule of product administration [Unknown]
